FAERS Safety Report 5101310-5 (Version None)
Quarter: 2006Q3

REPORT INFORMATION
  Report Type: 
  Country: None (occurrence: None)
  Receive Date: 20060911
  Receipt Date: 20060905
  Transmission Date: 20061208
  Serious: Yes (Hospitalization)
  Sender: FDA-Public Use
  Company Number: KR-BRISTOL-MYERS SQUIBB COMPANY-13498688

PATIENT
  Age: 46 Year
  Sex: Female

DRUGS (6)
  1. METHOTREXATE [Suspect]
     Indication: RHEUMATOID ARTHRITIS
     Dosage: DOSE WAS 7.5-12.5 MG PER WEEK WITH A TOTAL DOSE OF 1742 MG.
  2. FOLIC ACID [Concomitant]
  3. SULFASALAZINE [Concomitant]
  4. HYDROXYCHLOROQUINE SULFATE [Concomitant]
  5. SULINDAC [Concomitant]
  6. PREDNISOLONE [Concomitant]

REACTIONS (2)
  - T-CELL LYMPHOMA [None]
  - TREATMENT RELATED SECONDARY MALIGNANCY [None]
